FAERS Safety Report 4971692-3 (Version None)
Quarter: 2006Q2

REPORT INFORMATION
  Report Type: 
  Country: None (occurrence: None)
  Receive Date: 20060407
  Receipt Date: 20051102
  Transmission Date: 20061013
  Serious: Yes (Death, Hospitalization, Other)
  Sender: FDA-Public Use
  Company Number: 2005130185

PATIENT
  Age: 66 Year
  Sex: Female

DRUGS (2)
  1. BEXTRA [Suspect]
     Indication: ARTHRALGIA
     Dosage: 10 MG (10 MG, 1 IN 1 AS NECESSARY), ORAL
     Route: 048
     Dates: start: 20040317, end: 20040407
  2. CLARITIN-D [Suspect]
     Indication: HYPERSENSITIVITY
     Dates: end: 20050407

REACTIONS (43)
  - ARM AMPUTATION [None]
  - BACTERAEMIA [None]
  - BRAIN HERNIATION [None]
  - CHEST PAIN [None]
  - CHILLS [None]
  - CONJUNCTIVAL DISORDER [None]
  - CORNEAL EXFOLIATION [None]
  - CORNEAL TRANSPLANT [None]
  - DEEP VEIN THROMBOSIS [None]
  - DERMATITIS EXFOLIATIVE [None]
  - DIPLOPIA [None]
  - DRY EYE [None]
  - DYSPHAGIA [None]
  - DYSPNOEA [None]
  - EXFOLIATIVE RASH [None]
  - EYE DISORDER [None]
  - EYE PAIN [None]
  - EYEBALL RUPTURE [None]
  - GANGRENE [None]
  - HYPOTENSION [None]
  - INFLUENZA LIKE ILLNESS [None]
  - MALAISE [None]
  - NECROSIS [None]
  - OCULAR HYPERAEMIA [None]
  - PAIN IN EXTREMITY [None]
  - PERIPHERAL COLDNESS [None]
  - PERIPHERAL EMBOLISM [None]
  - PHARYNGEAL OEDEMA [None]
  - PHARYNGOLARYNGEAL PAIN [None]
  - PROTEINURIA [None]
  - PRURITUS [None]
  - RASH MACULAR [None]
  - RENAL FAILURE ACUTE [None]
  - RESPIRATORY DISTRESS [None]
  - SKIN DISORDER [None]
  - SKIN EXFOLIATION [None]
  - STAPHYLOCOCCAL INFECTION [None]
  - STEVENS-JOHNSON SYNDROME [None]
  - SUBDURAL HAEMATOMA [None]
  - THROMBOSIS [None]
  - TOXIC EPIDERMAL NECROLYSIS [None]
  - ULCERATIVE KERATITIS [None]
  - VISION BLURRED [None]
